FAERS Safety Report 6678816-0 (Version None)
Quarter: 2010Q2

REPORT INFORMATION
  Report Type: 
  Country: None (occurrence: None)
  Receive Date: 20100413
  Receipt Date: 20100401
  Transmission Date: 20101027
  Serious: Yes (Other)
  Sender: FDA-Public Use
  Company Number: US-MYLANLABS-2010S1004055

PATIENT
  Age: 4 Year
  Sex: Male

DRUGS (4)
  1. ENALAPRIL MALEATE [Suspect]
     Indication: BLOOD PRESSURE INCREASED
     Route: 048
     Dates: start: 20100308, end: 20100308
  2. ENALAPRIL MALEATE [Suspect]
     Indication: KIDNEY FIBROSIS
     Route: 048
     Dates: start: 20100308, end: 20100308
  3. ENALAPRIL MALEATE [Suspect]
     Indication: PROTEINURIA
     Route: 048
     Dates: start: 20100308, end: 20100308
  4. AMLODIPINE [Concomitant]

REACTIONS (3)
  - ANAPHYLACTIC REACTION [None]
  - MUSCULOSKELETAL STIFFNESS [None]
  - PSYCHOMOTOR HYPERACTIVITY [None]
